FAERS Safety Report 17482671 (Version 5)
Quarter: 2020Q2

REPORT INFORMATION
  Report Type: Spontaneous
  Country: US (occurrence: US)
  Receive Date: 20200302
  Receipt Date: 20200618
  Transmission Date: 20200713
  Serious: Yes (Other)
  Sender: FDA-Public Use
  Company Number: US-PFIZER INC-2020089600

PATIENT
  Age: 60 Year
  Sex: Female

DRUGS (13)
  1. CALCIUM 600 + D [Concomitant]
     Active Substance: CALCIUM\VITAMIN D
     Dosage: UNK, (CALCIUM 600+D 600 MG-200 INTL UNITS ORAL TABLET)
     Route: 048
  2. CHANTIX [Suspect]
     Active Substance: VARENICLINE TARTRATE
     Dosage: 1 MG, 2X/DAY (1 MG PO BID X 11 WEEKS)
     Route: 048
  3. ALBUTEROL [SALBUTAMOL] [Concomitant]
     Active Substance: ALBUTEROL
     Dosage: 90 UG, (90 MCG/INH INHALATION AEROSOL)
  4. CHANTIX [Suspect]
     Active Substance: VARENICLINE TARTRATE
     Dosage: 1 MG, (1 MG ORAL TABLET)
     Route: 048
  5. VENLAFAXINE HCL [Concomitant]
     Active Substance: VENLAFAXINE HYDROCHLORIDE
     Indication: DEPRESSION
     Dosage: 75 MG, 2X/DAY
  6. FIORICET [Concomitant]
     Active Substance: ACETAMINOPHEN\BUTALBITAL\CAFFEINE
     Indication: MIGRAINE
     Dosage: 50-30-40MG TABLET AS NEEDED
  7. TRAZODONE [Concomitant]
     Active Substance: TRAZODONE HYDROCHLORIDE
     Dosage: 100 MG, (100 MG ORAL TABLET)
     Route: 048
  8. CHANTIX [Suspect]
     Active Substance: VARENICLINE TARTRATE
     Dosage: 0.5MG PRESCRIPTION PACK X3 DAYS
  9. CHANTIX [Suspect]
     Active Substance: VARENICLINE TARTRATE
     Indication: SMOKING CESSATION THERAPY
     Dosage: STARTER PACK (0.5 MG- 1 MG ORAL TABLET. TAKE AS DIRECTED)
     Route: 048
  10. CHANTIX [Suspect]
     Active Substance: VARENICLINE TARTRATE
     Dosage: 0.5  TWICE DAILY X4 DAYS
  11. EFFEXOR XR [Concomitant]
     Active Substance: VENLAFAXINE HYDROCHLORIDE
     Dosage: 75 MG, (75 MG ORAL-CAPSULE EXTENDED RELEASE)
     Route: 048
  12. ZITHROMAX [Concomitant]
     Active Substance: AZITHROMYCIN DIHYDRATE
     Dosage: 250 MG, (250 MG ORAL TABLET)
     Route: 048
  13. FIORICET [Concomitant]
     Active Substance: ACETAMINOPHEN\BUTALBITAL\CAFFEINE
     Dosage: UNK, (FIORICET ORAL CAPSULE)
     Route: 048

REACTIONS (18)
  - Interstitial lung disease [Unknown]
  - Vertigo [Unknown]
  - Skin cancer [Unknown]
  - Bronchitis [Unknown]
  - Hypotension [Unknown]
  - Tinnitus [Unknown]
  - Migraine [Unknown]
  - Neck pain [Unknown]
  - Chronic obstructive pulmonary disease [Unknown]
  - Emphysema [Unknown]
  - Chest pain [Unknown]
  - Sinusitis [Unknown]
  - Sinus polyp [Unknown]
  - Headache [Unknown]
  - Insomnia [Unknown]
  - Pulmonary mass [Unknown]
  - Depression [Unknown]
  - Arthralgia [Unknown]

NARRATIVE: CASE EVENT DATE: 20191004
